FAERS Safety Report 20473463 (Version 1)
Quarter: 2022Q1

REPORT INFORMATION
  Report Type: Spontaneous
  Country: US (occurrence: US)
  Receive Date: 20220215
  Receipt Date: 20220215
  Transmission Date: 20220423
  Serious: No
  Sender: FDA-Public Use
  Company Number: US-MMM-L7V2MDEO

PATIENT
  Age: 87 Year
  Sex: Female
  Weight: 68.04 kg

DRUGS (1)
  1. AVAGE [Suspect]
     Active Substance: TAZAROTENE
     Indication: Therapeutic skin care topical
     Dosage: UNK
     Route: 061
     Dates: start: 201501, end: 202102

REACTIONS (4)
  - Dry eye [Recovering/Resolving]
  - Ocular hyperaemia [Recovering/Resolving]
  - Eye pruritus [Recovered/Resolved]
  - Condition aggravated [Unknown]

NARRATIVE: CASE EVENT DATE: 20201101
